FAERS Safety Report 4958263-X (Version None)
Quarter: 2006Q1

REPORT INFORMATION
  Report Type: 
  Country: None (occurrence: None)
  Receive Date: 20060330
  Receipt Date: 20060320
  Transmission Date: 20060701
  Serious: Yes (Life-Threatening, Hospitalization, Disabling, Other)
  Sender: FDA-Public Use
  Company Number: US-JNJFOC-20060204974

PATIENT
  Age: 60 Year
  Sex: Male

DRUGS (4)
  1. REMICADE [Suspect]
     Indication: RHEUMATOID ARTHRITIS
     Route: 042
  2. METHOTREXATE [Concomitant]
  3. MAXZIDE [Concomitant]
  4. MAXZIDE [Concomitant]

REACTIONS (3)
  - CARDIAC TAMPONADE [None]
  - GENERALISED OEDEMA [None]
  - LUPUS-LIKE SYNDROME [None]
